FAERS Safety Report 21719541 (Version 1)
Quarter: 2022Q4

REPORT INFORMATION
  Report Type: Spontaneous
  Country: US (occurrence: US)
  Receive Date: 20221213
  Receipt Date: 20221213
  Transmission Date: 20230113
  Serious: No
  Sender: FDA-Public Use
  Company Number: MIQ-04252022-2380

PATIENT
  Sex: Female

DRUGS (1)
  1. IVERMECTIN [Suspect]
     Active Substance: IVERMECTIN
     Indication: COVID-19 prophylaxis
     Dosage: 4 DF A WEEK
     Route: 065

REACTIONS (6)
  - Gastroenteritis viral [Unknown]
  - Illness [Unknown]
  - Vomiting [Unknown]
  - Feeling abnormal [Unknown]
  - Product quality issue [Unknown]
  - Product use in unapproved indication [Unknown]
